FAERS Safety Report 7535598-8 (Version None)
Quarter: 2011Q2

REPORT INFORMATION
  Report Type: 
  Country: None (occurrence: None)
  Receive Date: 20110609
  Receipt Date: 20110527
  Transmission Date: 20111010
  Serious: Yes (Other)
  Sender: FDA-Public Use
  Company Number: US-JNJFOC-20110502289

PATIENT
  Sex: Male
  Weight: 68.95 kg

DRUGS (5)
  1. EMTRICITABINE/TENOFOVIR DISOPROXIL FUMARATE [Concomitant]
     Indication: HIV INFECTION
     Route: 048
     Dates: start: 20101217, end: 20110421
  2. DOXORUBICIN HCL [Suspect]
     Route: 042
     Dates: start: 20110301, end: 20110301
  3. RITONAVIR [Concomitant]
     Indication: HIV INFECTION
     Route: 048
     Dates: start: 20101217, end: 20110421
  4. DOXORUBICIN HCL [Suspect]
     Indication: KAPOSI'S SARCOMA
     Route: 042
     Dates: start: 20110415, end: 20110415
  5. TMC114 [Concomitant]
     Indication: HIV INFECTION
     Route: 048
     Dates: start: 20101217, end: 20110421

REACTIONS (3)
  - CANDIDIASIS [None]
  - OESOPHAGEAL CANDIDIASIS [None]
  - KAPOSI'S SARCOMA [None]
